FAERS Safety Report 11213529 (Version 5)
Quarter: 2015Q3

REPORT INFORMATION
  Report Type: Report from Study
  Country: CO (occurrence: CO)
  Receive Date: 20150623
  Receipt Date: 20150828
  Transmission Date: 20151125
  Serious: Yes (Other)
  Sender: FDA-Public Use
  Company Number: PHHY2015CO075776

PATIENT
  Age: 63 Year
  Sex: Female
  Weight: 51 kg

DRUGS (3)
  1. AFINITOR [Suspect]
     Active Substance: EVEROLIMUS
     Indication: BREAST CANCER
  2. AFINITOR [Suspect]
     Active Substance: EVEROLIMUS
     Indication: NEOPLASM MALIGNANT
     Dosage: 1 DF, QD
     Route: 048
  3. ZOLEDRONIC ACID [Concomitant]
     Active Substance: ZOLEDRONIC ACID
     Indication: METASTASES TO BONE
     Dosage: 1 OT, QMO
     Route: 042

REACTIONS (7)
  - Bone pain [Not Recovered/Not Resolved]
  - Abdominal pain [Unknown]
  - General physical health deterioration [Unknown]
  - Metastases to spine [Unknown]
  - Malaise [Unknown]
  - Nephrolithiasis [Not Recovered/Not Resolved]
  - Hypertension [Unknown]

NARRATIVE: CASE EVENT DATE: 201410
